FAERS Safety Report 18611106 (Version 1)
Quarter: 2020Q4

REPORT INFORMATION
  Report Type: Spontaneous
  Country: US (occurrence: US)
  Receive Date: 20201214
  Receipt Date: 20201214
  Transmission Date: 20210114
  Serious: Yes (Other)
  Sender: FDA-Public Use
  Company Number: US-PFIZER INC-2020488410

PATIENT
  Age: 58 Year
  Sex: Female

DRUGS (3)
  1. CARBOPLATIN. [Suspect]
     Active Substance: CARBOPLATIN
     Dosage: UNK
     Dates: start: 201902, end: 201906
  2. NEULASTA [Suspect]
     Active Substance: PEGFILGRASTIM
     Dosage: UNK
  3. TAXOL [Concomitant]
     Active Substance: PACLITAXEL
     Dosage: UNK

REACTIONS (13)
  - Fatigue [Recovered/Resolved]
  - Nausea [Recovered/Resolved]
  - Arthralgia [Recovered/Resolved]
  - Neuropathy peripheral [Recovered/Resolved]
  - Alopecia [Recovered/Resolved]
  - Pain of skin [Recovered/Resolved]
  - Hypoaesthesia [Recovered/Resolved]
  - Miliaria [Recovered/Resolved]
  - Vomiting [Recovered/Resolved]
  - Bone pain [Recovered/Resolved]
  - Platelet count decreased [Recovered/Resolved]
  - Pain in extremity [Recovered/Resolved]
  - Fall [Recovered/Resolved]
